FAERS Safety Report 21760724 (Version 2)
Quarter: 2022Q4

REPORT INFORMATION
  Report Type: Spontaneous
  Country: US (occurrence: US)
  Receive Date: 20221221
  Receipt Date: 20221229
  Transmission Date: 20230112
  Serious: No
  Sender: FDA-Public Use
  Company Number: US-PFIZER INC-PV202200126361

PATIENT
  Age: 14 Year
  Sex: Male
  Weight: 38.56 kg

DRUGS (5)
  1. GENOTROPIN [Suspect]
     Active Substance: SOMATROPIN
     Indication: Growth hormone deficiency
     Dosage: 1.4 MG, DAILY
     Dates: start: 202204
  2. GENOTROPIN [Suspect]
     Active Substance: SOMATROPIN
     Dosage: 6 DAYS A WEEK
     Dates: start: 202204, end: 202212
  3. ESCITALOPRAM [Concomitant]
     Active Substance: ESCITALOPRAM OXALATE
     Indication: Anxiety
     Dosage: 15 MG, DAILY
     Dates: start: 202202
  4. GUANFACINE [Concomitant]
     Active Substance: GUANFACINE
     Indication: Attention deficit hyperactivity disorder
     Dosage: 3 MG, 1X/DAY
  5. DEXMETHYLPHENIDATE [Concomitant]
     Active Substance: DEXMETHYLPHENIDATE
     Indication: Attention deficit hyperactivity disorder
     Dosage: 35MG IN THE MORNING AND 20MG IN THE AFTERNOON TAKES EVERY DAY

REACTIONS (4)
  - Device leakage [Unknown]
  - Drug dose omission by device [Unknown]
  - Device malfunction [Unknown]
  - Incorrect dose administered by device [Unknown]

NARRATIVE: CASE EVENT DATE: 20220101
